FAERS Safety Report 20095719 (Version 1)
Quarter: 2021Q4

REPORT INFORMATION
  Report Type: Report from Study
  Country: BR (occurrence: BR)
  Receive Date: 20211122
  Receipt Date: 20211122
  Transmission Date: 20220304
  Serious: Yes (Other)
  Sender: FDA-Public Use
  Company Number: BR-NOVARTISPH-NVSC2021BR262649

PATIENT
  Age: 39 Year
  Sex: Female

DRUGS (9)
  1. ANASTROZOLE [Suspect]
     Active Substance: ANASTROZOLE
     Indication: Product used for unknown indication
     Dosage: 1 MG, QD
     Route: 065
     Dates: start: 20190821
  2. RIBOCICLIB [Suspect]
     Active Substance: RIBOCICLIB
     Indication: Product used for unknown indication
     Dosage: 600 MG, FOR 21 DAYS EVERY 28 DAY CYCLE
     Route: 065
     Dates: start: 20190821
  3. RIBOCICLIB [Suspect]
     Active Substance: RIBOCICLIB
     Dosage: 400 MG
     Route: 065
  4. RIBOCICLIB [Suspect]
     Active Substance: RIBOCICLIB
     Dosage: 200 MG
     Route: 065
  5. ZOMETA [Suspect]
     Active Substance: ZOLEDRONIC ACID
     Indication: Product used for unknown indication
     Dosage: 4 MG, Q3W
     Route: 065
     Dates: start: 20190821
  6. GOSERELIN [Concomitant]
     Active Substance: GOSERELIN
     Indication: Product used for unknown indication
     Dosage: 3.6 MG, QMO
     Route: 065
     Dates: start: 20190821, end: 201910
  7. ABEMACICLIB [Concomitant]
     Active Substance: ABEMACICLIB
     Indication: Product used for unknown indication
     Dosage: 150 UNK
     Route: 065
  8. ABEMACICLIB [Concomitant]
     Active Substance: ABEMACICLIB
     Dosage: 100 MG
     Route: 065
  9. ABEMACICLIB [Concomitant]
     Active Substance: ABEMACICLIB
     Dosage: 50 MG, BID
     Route: 065

REACTIONS (7)
  - Neutropenia [Unknown]
  - Mucosal inflammation [Unknown]
  - Urinary tract infection [Unknown]
  - Skin disorder [Unknown]
  - Diarrhoea [Unknown]
  - Asthenia [Unknown]
  - Abdominal pain [Unknown]

NARRATIVE: CASE EVENT DATE: 20190901
